FAERS Safety Report 20746633 (Version 4)
Quarter: 2022Q3

REPORT INFORMATION
  Report Type: Other
  Country: TW (occurrence: None)
  Receive Date: 20220425
  Receipt Date: 20220824
  Transmission Date: 20221026
  Serious: Yes (Other)
  Sender: FDA-Public Use
  Company Number: TW-ROCHE-2604418

PATIENT
  Age: 53 Year
  Sex: Male

DRUGS (32)
  1. AVASTIN [Suspect]
     Active Substance: BEVACIZUMAB
     Indication: Non-small cell lung cancer
     Route: 041
     Dates: start: 20200204
  2. TECENTRIQ [Suspect]
     Active Substance: ATEZOLIZUMAB
     Indication: Non-small cell lung cancer
     Route: 041
     Dates: start: 20200107, end: 20200107
  3. TECENTRIQ [Suspect]
     Active Substance: ATEZOLIZUMAB
     Route: 041
     Dates: start: 20200204, end: 20200204
  4. TECENTRIQ [Suspect]
     Active Substance: ATEZOLIZUMAB
     Route: 041
     Dates: start: 20200301
  5. CISPLATIN [Suspect]
     Active Substance: CISPLATIN
     Indication: Non-small cell lung cancer
     Route: 065
     Dates: start: 20200824, end: 20201026
  6. CISPLATIN [Suspect]
     Active Substance: CISPLATIN
     Route: 065
     Dates: start: 20201214
  7. TAXOTERE [Concomitant]
     Active Substance: DOCETAXEL
     Indication: Non-small cell lung cancer
     Route: 041
     Dates: start: 20200107, end: 20200107
  8. TAXOTERE [Concomitant]
     Active Substance: DOCETAXEL
     Route: 041
     Dates: start: 20200114, end: 20200114
  9. TAXOTERE [Concomitant]
     Active Substance: DOCETAXEL
     Route: 041
     Dates: start: 20200204, end: 20200204
  10. TAXOTERE [Concomitant]
     Active Substance: DOCETAXEL
     Route: 041
     Dates: start: 20200218, end: 20200218
  11. TAXOTERE [Concomitant]
     Active Substance: DOCETAXEL
     Route: 041
     Dates: start: 20200301, end: 20200301
  12. TAXOTERE [Concomitant]
     Active Substance: DOCETAXEL
     Route: 041
     Dates: start: 20200331, end: 20200331
  13. TAXOTERE [Concomitant]
     Active Substance: DOCETAXEL
     Route: 041
     Dates: start: 20200421, end: 20200421
  14. TAXOTERE [Concomitant]
     Active Substance: DOCETAXEL
     Route: 041
     Dates: start: 20200512, end: 20200803
  15. LOWEN [Concomitant]
     Route: 048
     Dates: start: 20200512, end: 20200601
  16. LYRICA [Concomitant]
     Active Substance: PREGABALIN
     Route: 048
     Dates: start: 20200512, end: 20200601
  17. LYRICA [Concomitant]
     Active Substance: PREGABALIN
     Route: 048
     Dates: start: 20200714
  18. OXYCONTIN CONTROLLED RELEASE [Concomitant]
     Dates: start: 20200512, end: 20200523
  19. SENNAPUR [Concomitant]
     Route: 048
     Dates: start: 20200512, end: 20200601
  20. FENTANYL [Concomitant]
     Active Substance: FENTANYL
     Route: 061
     Dates: start: 20200512, end: 20200526
  21. MEDROXYPROGESTERONE ACETATE [Concomitant]
     Active Substance: MEDROXYPROGESTERONE ACETATE
     Route: 048
     Dates: start: 20200512, end: 20200601
  22. PREDNISOLONE ACETATE [Concomitant]
     Active Substance: PREDNISOLONE ACETATE
     Route: 048
     Dates: start: 20200512, end: 20200513
  23. RINDERON [Concomitant]
     Route: 040
     Dates: start: 20200512, end: 20200512
  24. XYLMOL [Concomitant]
     Route: 054
     Dates: start: 20200714
  25. BIODYNE [Concomitant]
     Route: 061
     Dates: start: 20200714
  26. ALIMTA [Concomitant]
     Active Substance: PEMETREXED DISODIUM
     Indication: Non-small cell lung cancer
     Route: 041
     Dates: start: 20200803
  27. XGEVA [Concomitant]
     Active Substance: DENOSUMAB
     Route: 058
     Dates: start: 20201214
  28. ACETYLCYSTEINE [Concomitant]
     Active Substance: ACETYLCYSTEINE
     Route: 048
     Dates: start: 20210111
  29. KASCOAL [Concomitant]
     Route: 048
     Dates: start: 20210628
  30. ALINAMIN-F TABLETS [Concomitant]
     Dosage: FURSULTIAMINE 50 MG+VITAMIN B2 5 MG
     Route: 048
     Dates: start: 20200512, end: 20200601
  31. DULCOLAX STOOL SOFTENER [Concomitant]
     Active Substance: DOCUSATE SODIUM
     Route: 048
     Dates: start: 20200512, end: 20200601
  32. B-RED [Concomitant]

REACTIONS (18)
  - Bronchiolitis [Unknown]
  - Viral infection [Unknown]
  - Constipation [Recovered/Resolved]
  - Insomnia [Recovered/Resolved]
  - Anaemia vitamin B12 deficiency [Unknown]
  - White blood cell count decreased [Recovered/Resolved]
  - Hypophagia [Recovered/Resolved]
  - Haemoglobin decreased [Recovered/Resolved]
  - Aortic arteriosclerosis [Unknown]
  - Arteriosclerosis coronary artery [Unknown]
  - Spinal osteoarthritis [Unknown]
  - Palpitations [Unknown]
  - Abdominal distension [Unknown]
  - Blood pressure increased [Unknown]
  - Skin abrasion [Unknown]
  - Headache [Not Recovered/Not Resolved]
  - Anal incontinence [Not Recovered/Not Resolved]
  - Skin lesion [Unknown]

NARRATIVE: CASE EVENT DATE: 20200714
